FAERS Safety Report 23736756 (Version 1)
Quarter: 2024Q2

REPORT INFORMATION
  Report Type: Spontaneous
  Country: US (occurrence: US)
  Receive Date: 20240412
  Receipt Date: 20240412
  Transmission Date: 20240716
  Serious: No
  Sender: FDA-Public Use
  Company Number: US-PFIZER INC-202400085188

PATIENT
  Age: 60 Year
  Sex: Female
  Weight: 76.2 kg

DRUGS (8)
  1. XELJANZ [Suspect]
     Active Substance: TOFACITINIB CITRATE
     Indication: Rheumatoid arthritis
     Dosage: TWO 5MG TABLETS PER DAY BY MOUTH
     Route: 048
  2. AMLODIPINE [Concomitant]
     Active Substance: AMLODIPINE BESYLATE
     Indication: Hypertension
     Dosage: 5MG TABLET ONCE DAILY BY MOUTH
     Route: 048
  3. METOPROLOL [Concomitant]
     Active Substance: METOPROLOL
     Indication: Heart rate abnormal
     Dosage: 50MG TABLET IN THE MORNING AND 25MG TABLET AT NIGHT BY MOUTH
     Route: 048
  4. FENOFIBRATE [Concomitant]
     Active Substance: FENOFIBRATE
     Indication: Blood cholesterol increased
     Dosage: 160MG TABLET TWO TIMES A DAY BY MOUTH
     Route: 048
  5. ATORVASTATIN [Concomitant]
     Active Substance: ATORVASTATIN
     Indication: Blood cholesterol
     Dosage: 40MG TABLET ONCE A DAY BY MOUTH
     Route: 048
  6. LEFLUNOMIDE [Concomitant]
     Active Substance: LEFLUNOMIDE
     Indication: Rheumatoid arthritis
     Dosage: 20MG TABLET ONCE DAILY BY MOUTH
     Route: 048
  7. GLIPIZIDE [Concomitant]
     Active Substance: GLIPIZIDE
     Indication: Blood glucose increased
     Dosage: 2.5MG TABLET ONCE DAILY BY MOUTH
     Route: 048
  8. GABAPENTIN [Concomitant]
     Active Substance: GABAPENTIN
     Indication: Fibromyalgia
     Dosage: 300MG, TWO CAPSULES DAILY BY MOUTH
     Route: 048

REACTIONS (7)
  - Nasal dryness [Recovering/Resolving]
  - Epistaxis [Recovering/Resolving]
  - Diarrhoea [Not Recovered/Not Resolved]
  - Rhinalgia [Recovering/Resolving]
  - Cough [Recovering/Resolving]
  - Chest pain [Recovering/Resolving]
  - Abdominal pain upper [Unknown]

NARRATIVE: CASE EVENT DATE: 20240101
